FAERS Safety Report 12711687 (Version 1)
Quarter: 2016Q3

REPORT INFORMATION
  Report Type: Spontaneous
  Country: JP (occurrence: JP)
  Receive Date: 20160902
  Receipt Date: 20160902
  Transmission Date: 20161109
  Serious: Yes (Other)
  Sender: FDA-Public Use
  Company Number: JP-BAYER-2016-167671

PATIENT
  Sex: Female
  Weight: 2.15 kg

DRUGS (11)
  1. RITODRINE [Concomitant]
     Active Substance: RITODRINE
     Indication: THREATENED LABOUR
     Dosage: UNK
     Route: 064
  2. ARGATROBAN. [Concomitant]
     Active Substance: ARGATROBAN
     Indication: BRAIN STEM INFARCTION
  3. ACETYLSALICYLIC ACID({=100 MG) [Suspect]
     Active Substance: ASPIRIN
     Dosage: 100 MG, QD
     Route: 064
  4. MAGNESIUM [MAGNESIUM SULFATE] [Concomitant]
     Active Substance: MAGNESIUM SULFATE
     Indication: THREATENED LABOUR
     Dosage: UNK
     Route: 064
  5. HYDROCORTISONE. [Concomitant]
     Active Substance: HYDROCORTISONE
     Indication: STEVENS-JOHNSON SYNDROME
     Dosage: 600 MG, QD
     Route: 064
  6. PLATELETS [Concomitant]
     Active Substance: HUMAN PLATELET, ALLOGENIC
     Dosage: DAILY DOSE 10 DF
     Route: 062
  7. CLOPIDOGREL [Interacting]
     Active Substance: CLOPIDOGREL BISULFATE
     Dosage: 75 MG, QD
     Route: 064
  8. ARGATROBAN. [Concomitant]
     Active Substance: ARGATROBAN
     Indication: BASILAR ARTERY STENOSIS
     Dosage: UNK
     Route: 064
  9. CILOSTAZOL. [Concomitant]
     Active Substance: CILOSTAZOL
     Dosage: 200 MG, QD
  10. HEPARIN [Interacting]
     Active Substance: HEPARIN SODIUM
     Dosage: 10000 U, QD
     Route: 064
  11. RED CELLS MAP [Concomitant]
     Active Substance: HUMAN RED BLOOD CELL
     Dosage: 10 U, DAILY DOSE 4 DF
     Route: 064

REACTIONS (4)
  - Low birth weight baby [None]
  - Foetal heart rate deceleration abnormality [None]
  - Premature baby [None]
  - Foetal exposure during pregnancy [Recovered/Resolved]
